FAERS Safety Report 5059465-7 (Version None)
Quarter: 2006Q3

REPORT INFORMATION
  Report Type: 
  Country: None (occurrence: None)
  Receive Date: 20060724
  Receipt Date: 20060712
  Transmission Date: 20061208
  Serious: Yes (Hospitalization)
  Sender: FDA-Public Use
  Company Number: PHNU2006DE02509

PATIENT
  Sex: Male

DRUGS (1)
  1. SANDIMMUNE [Suspect]
     Indication: LIVER TRANSPLANT
     Dosage: 200 MG DAILY
     Route: 048

REACTIONS (3)
  - ARRHYTHMIA [None]
  - BLOOD CREATININE INCREASED [None]
  - RENAL FAILURE [None]
